FAERS Safety Report 5201066-1 (Version None)
Quarter: 2007Q1

REPORT INFORMATION
  Report Type: 
  Country: None (occurrence: None)
  Receive Date: 20070103
  Receipt Date: 20061221
  Transmission Date: 20070707
  Serious: Yes (Life-Threatening, Other)
  Sender: FDA-Public Use
  Company Number: GXKR2006BR08447

PATIENT
  Age: 44 Year
  Sex: Male

DRUGS (2)
  1. RIBAVIRIN [Suspect]
     Indication: HEPATITIS C
     Dosage: 1 G, QD
     Dates: start: 20040201
  2. PEGINTERFERON ALFA-2B(PEGINTERFERON ALFA-2B) [Suspect]
     Indication: HEPATITIS C
     Dosage: 1.5 UG/KG, QW,
     Dates: start: 20040201

REACTIONS (7)
  - BLOOD CHOLESTEROL INCREASED [None]
  - DRUG INTOLERANCE [None]
  - FOCAL GLOMERULOSCLEROSIS [None]
  - IDIOPATHIC THROMBOCYTOPENIC PURPURA [None]
  - NEPHROPATHY TOXIC [None]
  - NEPHROTIC SYNDROME [None]
  - NO THERAPEUTIC RESPONSE [None]
